FAERS Safety Report 9342993 (Version 2)
Quarter: 2013Q2

REPORT INFORMATION
  Report Type: Spontaneous
  Country: US (occurrence: US)
  Receive Date: 20130611
  Receipt Date: 20130625
  Transmission Date: 20140414
  Serious: Yes (Death)
  Sender: FDA-Public Use
  Company Number: US-GILEAD-2013-0076794

PATIENT
  Sex: Female

DRUGS (3)
  1. LETAIRIS [Suspect]
     Indication: PULMONARY ARTERIAL HYPERTENSION
     Dosage: 10 MG, UNK
     Route: 048
     Dates: start: 200803, end: 20130523
  2. LETAIRIS [Suspect]
     Indication: CREST SYNDROME
  3. LETAIRIS [Suspect]
     Indication: SCLERODERMA

REACTIONS (2)
  - Renal failure acute [Fatal]
  - Cor pulmonale [Fatal]
